FAERS Safety Report 14966103 (Version 2)
Quarter: 2018Q2

REPORT INFORMATION
  Report Type: Spontaneous
  Country: DE (occurrence: DE)
  Receive Date: 20180603
  Receipt Date: 20180619
  Transmission Date: 20180711
  Serious: Yes (Hospitalization)
  Sender: FDA-Public Use
  Company Number: DE-ROCHE-2132752

PATIENT
  Age: 16 Year
  Sex: Male
  Weight: 78 kg

DRUGS (1)
  1. ROACTEMRA [Suspect]
     Active Substance: TOCILIZUMAB
     Indication: JUVENILE IDIOPATHIC ARTHRITIS
     Route: 058
     Dates: start: 20180212

REACTIONS (8)
  - Acne [Recovering/Resolving]
  - Skin weeping [Recovering/Resolving]
  - Mental disorder [Not Recovered/Not Resolved]
  - Genital pain [Recovering/Resolving]
  - Hidradenitis [Not Recovered/Not Resolved]
  - Folliculitis [Not Recovered/Not Resolved]
  - Depressed mood [Not Recovered/Not Resolved]
  - Acne conglobata [Recovering/Resolving]

NARRATIVE: CASE EVENT DATE: 20180326
